FAERS Safety Report 13876362 (Version 2)
Quarter: 2017Q4

REPORT INFORMATION
  Report Type: Spontaneous
  Country: US (occurrence: US)
  Receive Date: 20170817
  Receipt Date: 20171116
  Transmission Date: 20180320
  Serious: Yes (Other)
  Sender: FDA-Public Use
  Company Number: US-APOTEX-2017AP016880

PATIENT
  Age: 62 Year
  Sex: Female

DRUGS (2)
  1. MEGESTROL ACETATE ORAL SUSPENSION USP [Suspect]
     Active Substance: MEGESTROL ACETATE
     Indication: ENDOMETRIAL CANCER
     Dosage: 400 MG, QD
     Route: 065
  2. MEGESTROL ACETATE ORAL SUSPENSION USP [Suspect]
     Active Substance: MEGESTROL ACETATE
     Dosage: 80 MG, BID
     Route: 065

REACTIONS (4)
  - Wheelchair user [Unknown]
  - Weight increased [Unknown]
  - Diabetes mellitus [Unknown]
  - Asthenia [Unknown]
